FAERS Safety Report 6842105-1 (Version None)
Quarter: 2010Q3

REPORT INFORMATION
  Report Type: 
  Country: None (occurrence: None)
  Receive Date: 20100714
  Receipt Date: 20080725
  Transmission Date: 20110219
  Serious: No
  Sender: FDA-Public Use
  Company Number: US-PFIZER INC-2007061434

PATIENT
  Sex: Male
  Weight: 159.7 kg

DRUGS (8)
  1. CHANTIX [Suspect]
     Indication: SMOKING CESSATION THERAPY
     Dates: start: 20070720
  2. THORAZINE [Interacting]
  3. LISINOPRIL [Concomitant]
  4. GEMFIBROZIL [Concomitant]
  5. INSULIN [Concomitant]
  6. ZOCOR [Concomitant]
  7. SYNTHROID [Concomitant]
  8. COGENTIN [Concomitant]

REACTIONS (16)
  - ADVERSE DRUG REACTION [None]
  - ARTERIOSCLEROSIS [None]
  - ARTHRALGIA [None]
  - BACK PAIN [None]
  - COUGH [None]
  - DIZZINESS [None]
  - DRUG INTERACTION [None]
  - DRUG WITHDRAWAL SYNDROME [None]
  - DRY MOUTH [None]
  - FEELING ABNORMAL [None]
  - MOOD SWINGS [None]
  - MOVEMENT DISORDER [None]
  - MUSCLE FATIGUE [None]
  - MYALGIA [None]
  - PELVIC PAIN [None]
  - SOMNOLENCE [None]
